FAERS Safety Report 5518128-1 (Version None)
Quarter: 2007Q4

REPORT INFORMATION
  Report Type: 
  Country: None (occurrence: None)
  Receive Date: 20071115
  Receipt Date: 20071108
  Transmission Date: 20080405
  Serious: Yes (Other)
  Sender: FDA-Public Use
  Company Number: AU-AVENTIS-200720358GDDC

PATIENT

DRUGS (1)
  1. FLAGYL [Suspect]
     Dosage: DOSE: UNK

REACTIONS (1)
  - PANCREATITIS [None]
